FAERS Safety Report 6385875-1 (Version None)
Quarter: 2009Q4

REPORT INFORMATION
  Report Type: 
  Country: None (occurrence: None)
  Receive Date: 20091002
  Receipt Date: 20090923
  Transmission Date: 20100525
  Serious: Yes (Other)
  Sender: FDA-Public Use
  Company Number: GB-ELI_LILLY_AND_COMPANY-GB200909005451

PATIENT
  Age: 58 Year
  Sex: Male
  Weight: 109.2 kg

DRUGS (3)
  1. BYETTA [Suspect]
     Indication: DIABETES MELLITUS
     Dosage: 10 UG, 2/D
     Route: 058
     Dates: start: 20090216
  2. HUMALOG [Concomitant]
     Indication: DIABETES MELLITUS
     Route: 058
  3. LANTUS [Concomitant]
     Indication: DIABETES MELLITUS
     Dosage: 78 IU, UNK
     Route: 058

REACTIONS (3)
  - HYPOGLYCAEMIA [None]
  - OFF LABEL USE [None]
  - OVERDOSE [None]
